FAERS Safety Report 11194800 (Version 1)
Quarter: 2015Q2

REPORT INFORMATION
  Report Type: Spontaneous
  Country: FR (occurrence: FR)
  Receive Date: 20150617
  Receipt Date: 20150617
  Transmission Date: 20150821
  Serious: Yes (Hospitalization)
  Sender: FDA-Public Use
  Company Number: FR-MERCK-1506FRA005756

PATIENT
  Age: 62 Year
  Sex: Male

DRUGS (21)
  1. ROVAMYCINE [Suspect]
     Active Substance: SPIRAMYCIN
     Dosage: UNK
     Route: 051
     Dates: start: 20150314, end: 201503
  2. LOVENOX [Concomitant]
     Active Substance: ENOXAPARIN SODIUM
     Dosage: UNK
  3. CACIT [Concomitant]
     Active Substance: CALCIUM\VITAMIN D
     Dosage: UNK
  4. INEXIUM (ESOMEPRAZOLE SODIUM) [Concomitant]
     Active Substance: ESOMEPRAZOLE
     Dosage: FORMULATION: GASTRO-RESISTANT TABLET
     Route: 048
  5. PENTACARINAT [Concomitant]
     Active Substance: PENTAMIDINE ISETHIONATE
     Dosage: FORMULATION: POWDER FOR AEROSOL AND FOR PARENTAL USE
  6. COLIMYCINE (COLISTIN SULFATE) [Concomitant]
     Active Substance: COLISTIN SULFATE
     Dosage: UNK
  7. CELLCEPT [Concomitant]
     Active Substance: MYCOPHENOLATE MOFETIL\MYCOPHENOLATE MOFETIL HYDROCHLORIDE
     Dosage: UNK
     Route: 048
  8. PROGRAF [Concomitant]
     Active Substance: TACROLIMUS\TACROLIMUS ANHYDROUS
     Dosage: UNK
     Route: 048
  9. SOLUPRED [Concomitant]
     Active Substance: PREDNISOLONE
     Dosage: UNK
     Route: 048
  10. KAYEXALATE [Concomitant]
     Active Substance: SODIUM POLYSTYRENE SULFONATE
     Dosage: UNK
  11. ZELITREX [Concomitant]
     Active Substance: VALACYCLOVIR HYDROCHLORIDE
     Dosage: UNK
     Route: 048
  12. ZYVOXID [Suspect]
     Active Substance: LINEZOLID
     Dosage: UNK
     Dates: start: 20150314, end: 201503
  13. BEVITINE [Concomitant]
     Active Substance: THIAMINE
     Dosage: UNK
  14. AMBISOME [Concomitant]
     Active Substance: AMPHOTERICIN B
     Dosage: UNK
  15. TAZOCILLINE [Suspect]
     Active Substance: PIPERACILLIN SODIUM\TAZOBACTAM SODIUM
     Dosage: UNK
     Route: 041
     Dates: start: 20150314, end: 201503
  16. KARDEGIC [Concomitant]
     Active Substance: ASPIRIN LYSINE
     Dosage: FORMULATION: POWDER FOR ORAL SOLUTION IN DOSE-SACHET
     Route: 048
  17. TIENAM IV 250MG/250MG, POUDRE POUR PERFUSION [Suspect]
     Active Substance: CILASTATIN SODIUM\IMIPENEM
     Dosage: UNK
     Route: 041
     Dates: start: 201503, end: 20150327
  18. BECILAN [Concomitant]
     Active Substance: PYRIDOXINE
     Dosage: UNK
  19. VENTOLIN [Concomitant]
     Active Substance: ALBUTEROL SULFATE
     Dosage: UNK
  20. FLECAINE [Concomitant]
     Active Substance: FLECAINIDE
     Dosage: UNK
  21. ATENOLOL. [Concomitant]
     Active Substance: ATENOLOL
     Dosage: UNK

REACTIONS (2)
  - Thrombocytopenia [Recovered/Resolved]
  - Anaemia [Recovered/Resolved]

NARRATIVE: CASE EVENT DATE: 20150317
